FAERS Safety Report 18564102 (Version 1)
Quarter: 2020Q4

REPORT INFORMATION
  Report Type: Spontaneous
  Country: ES (occurrence: ES)
  Receive Date: 20201201
  Receipt Date: 20201201
  Transmission Date: 20210114
  Serious: Yes (Hospitalization)
  Sender: FDA-Public Use
  Company Number: ES-NOVOPROD-768737

PATIENT
  Age: 67 Year
  Sex: Male
  Weight: 110 kg

DRUGS (11)
  1. METFORMIN [Concomitant]
     Active Substance: METFORMIN HYDROCHLORIDE
     Dosage: 850 MG, QD
     Route: 048
     Dates: start: 20120502
  2. PRAVASTATIN. [Concomitant]
     Active Substance: PRAVASTATIN
     Dosage: 40 MG, QD
     Route: 048
     Dates: start: 20181123, end: 20201113
  3. OMACOR [Concomitant]
     Active Substance: OMEGA-3-ACID ETHYL ESTERS
     Dosage: 3 G, QD
     Route: 048
     Dates: start: 20171127
  4. OZEMPIC [Suspect]
     Active Substance: SEMAGLUTIDE
     Indication: TYPE 2 DIABETES MELLITUS
     Dosage: 0.5 MG, QW
     Route: 058
     Dates: start: 20200706, end: 20201102
  5. BISOPROLOL MYLAN [Concomitant]
     Active Substance: BISOPROLOL
     Dosage: 5 MG
     Route: 048
     Dates: start: 20140617
  6. OLMESARTAN MYLAN [Concomitant]
     Active Substance: OLMESARTAN
     Dosage: 40 MG, QD
     Route: 048
  7. DIGOXINA KERN PHARMA [Concomitant]
     Active Substance: DIGOXIN
     Dosage: 1.25 MG, QW
     Route: 048
     Dates: start: 20140702
  8. SINTROM [Concomitant]
     Active Substance: ACENOCOUMAROL
     Dosage: 4 MG
     Route: 048
     Dates: start: 20120911
  9. ALOPURINOL [Concomitant]
     Active Substance: ALLOPURINOL
     Dosage: 300 MG, QD
     Route: 048
     Dates: start: 20120512
  10. SERETIDE [Concomitant]
     Active Substance: FLUTICASONE PROPIONATE\SALMETEROL XINAFOATE
     Dosage: 1 DF
     Route: 055
     Dates: start: 20140605
  11. ACALKA [Concomitant]
     Active Substance: POTASSIUM CITRATE
     Dosage: 1160 MG, QD
     Route: 048
     Dates: start: 20120221

REACTIONS (1)
  - Transient ischaemic attack [Recovered/Resolved]

NARRATIVE: CASE EVENT DATE: 20201019
